FAERS Safety Report 16447366 (Version 3)
Quarter: 2019Q2

REPORT INFORMATION
  Report Type: Spontaneous
  Country: JP (occurrence: JP)
  Receive Date: 20190618
  Receipt Date: 20190628
  Transmission Date: 20190711
  Serious: Yes (Other)
  Sender: FDA-Public Use
  Company Number: JP-ROCHE-2339491

PATIENT
  Age: 68 Year
  Sex: Male

DRUGS (5)
  1. LUCENTIS [Suspect]
     Active Substance: RANIBIZUMAB
     Dosage: EIGHTH DOSE
     Route: 065
  2. LUCENTIS [Suspect]
     Active Substance: RANIBIZUMAB
     Indication: AGE-RELATED MACULAR DEGENERATION
     Route: 031
  3. LUCENTIS [Suspect]
     Active Substance: RANIBIZUMAB
     Route: 031
  4. LUCENTIS [Suspect]
     Active Substance: RANIBIZUMAB
     Dosage: FOURTH DOSE, FIFTH DOSE, SIXTH DOSE AND SEVENTH DOSE
     Route: 047
  5. LUCENTIS [Suspect]
     Active Substance: RANIBIZUMAB
     Route: 031

REACTIONS (3)
  - Retinal vessel avulsion [Unknown]
  - Age-related macular degeneration [Unknown]
  - Visual impairment [Unknown]
